FAERS Safety Report 8998892 (Version 1)
Quarter: 2013Q1

REPORT INFORMATION
  Report Type: Spontaneous
  Country: US (occurrence: US)
  Receive Date: 20130103
  Receipt Date: 20130103
  Transmission Date: 20140127
  Serious: No
  Sender: FDA-Public Use
  Company Number: US-PFIZER INC-2013001294

PATIENT
  Age: 74 Year
  Sex: Male
  Weight: 83 kg

DRUGS (1)
  1. DEXAMETHASONE SODIUM PHOSPHATE [Suspect]
     Indication: NEOPLASM MALIGNANT
     Dosage: UNK

REACTIONS (1)
  - Blood glucose increased [Unknown]
